FAERS Safety Report 5321093-3 (Version None)
Quarter: 2007Q2

REPORT INFORMATION
  Report Type: 
  Country: None (occurrence: None)
  Receive Date: 20070504
  Receipt Date: 20070418
  Transmission Date: 20071010
  Serious: Yes (Death, Hospitalization)
  Sender: FDA-Public Use
  Company Number: 2007US000853

PATIENT
  Age: 46 Year
  Sex: Male

DRUGS (2)
  1. PROGRAF [Suspect]
     Indication: PROPHYLAXIS AGAINST TRANSPLANT REJECTION
  2. METHOTREXATE [Suspect]
     Indication: GRAFT VERSUS HOST DISEASE
     Dosage: 10 MG/M2

REACTIONS (11)
  - AMNESIA [None]
  - ANOREXIA [None]
  - ASTHENIA [None]
  - BACTERAEMIA [None]
  - CONFUSIONAL STATE [None]
  - CYTOMEGALOVIRUS COLITIS [None]
  - ENCEPHALITIS CYTOMEGALOVIRUS [None]
  - LETHARGY [None]
  - NO THERAPEUTIC RESPONSE [None]
  - RENAL FAILURE CHRONIC [None]
  - SEPSIS [None]
